FAERS Safety Report 17367865 (Version 1)
Quarter: 2020Q1

REPORT INFORMATION
  Report Type: Spontaneous
  Country: US (occurrence: US)
  Receive Date: 20200204
  Receipt Date: 20200204
  Transmission Date: 20200409
  Serious: No
  Sender: FDA-Public Use
  Company Number: US-PERRIGO-19US014006

PATIENT
  Age: 37 Year
  Sex: Female

DRUGS (2)
  1. ADAPALENE-BENZOYL PEROXIDE [Suspect]
     Active Substance: ADAPALENE\BENZOYL PEROXIDE
     Dosage: THIN LAYER, SINGLE
     Route: 061
     Dates: start: 20191111, end: 20191111
  2. ADAPALENE-BENZOYL PEROXIDE [Suspect]
     Active Substance: ADAPALENE\BENZOYL PEROXIDE
     Indication: ACNE CYSTIC
     Dosage: THIN LAYER, SINGLE
     Route: 061
     Dates: start: 20190910, end: 20190910

REACTIONS (4)
  - Eye swelling [Recovering/Resolving]
  - Ocular hyperaemia [Recovering/Resolving]
  - Eye pruritus [Recovering/Resolving]
  - Dry skin [Recovered/Resolved]

NARRATIVE: CASE EVENT DATE: 20190911
